FAERS Safety Report 20443196 (Version 2)
Quarter: 2022Q1

REPORT INFORMATION
  Report Type: Spontaneous
  Country: US (occurrence: US)
  Receive Date: 20220208
  Receipt Date: 20220208
  Transmission Date: 20220424
  Serious: Yes (Other)
  Sender: FDA-Public Use
  Company Number: US-CELGENE-USA-20220200027

PATIENT
  Sex: Male
  Weight: 65.830 kg

DRUGS (17)
  1. THALOMID [Suspect]
     Active Substance: THALIDOMIDE
     Indication: Plasma cell myeloma
     Dosage: 100 MILLIGRAM
     Route: 048
     Dates: start: 20211103, end: 20220112
  2. NIFEDIPINE [Concomitant]
     Active Substance: NIFEDIPINE
     Indication: Blood pressure measurement
     Route: 065
     Dates: start: 20211214
  3. NIFEDIPINE [Concomitant]
     Active Substance: NIFEDIPINE
     Route: 065
  4. NIFEDIPINE [Concomitant]
     Active Substance: NIFEDIPINE
     Route: 065
  5. CALCIUM [Concomitant]
     Active Substance: CALCIUM
     Indication: Product used for unknown indication
     Dosage: 1200 MILLIGRAM
     Route: 065
     Dates: start: 20211117
  6. DARATUMUMAB [Concomitant]
     Active Substance: DARATUMUMAB
     Indication: Product used for unknown indication
     Route: 048
  7. VELCADE [Concomitant]
     Active Substance: BORTEZOMIB
     Indication: Product used for unknown indication
     Route: 048
  8. CYTOXAN [Concomitant]
     Active Substance: CYCLOPHOSPHAMIDE
     Indication: Product used for unknown indication
     Route: 041
  9. ACYCLOVIR [Concomitant]
     Active Substance: ACYCLOVIR
     Indication: Herpes zoster
     Dosage: 200 MILLIGRAM
     Route: 065
     Dates: start: 20211228
  10. Glipizide  ER [Concomitant]
     Indication: Diabetes mellitus
     Dosage: 2.5 MILLIGRAM
     Route: 065
     Dates: start: 20210816
  11. JANUVIA [Concomitant]
     Active Substance: SITAGLIPTIN PHOSPHATE
     Indication: Product used for unknown indication
     Dosage: 25 MILLIGRAM
     Route: 065
     Dates: start: 202104
  12. LOVASTATIN [Concomitant]
     Active Substance: LOVASTATIN
     Indication: Product used for unknown indication
     Dosage: 80 MILLIGRAM
     Route: 065
  13. MEMANTINE [Concomitant]
     Active Substance: MEMANTINE
     Indication: Amnesia
     Dosage: 20 MILLIGRAM
     Route: 048
  14. VITAMIN B3 [Concomitant]
     Active Substance: NIACIN
     Indication: Product used for unknown indication
     Dosage: 1000 MILLIGRAM
     Route: 065
  15. METAMUCIL [Concomitant]
     Active Substance: PLANTAGO SEED
     Indication: Product used for unknown indication
     Route: 065
  16. stool softer [Concomitant]
     Indication: Product used for unknown indication
     Dosage: 100 MILLIGRAM
     Route: 065
  17. ASPIRIN [Concomitant]
     Active Substance: ASPIRIN
     Indication: Thrombosis
     Dosage: 81 MILLIGRAM
     Route: 065

REACTIONS (15)
  - Renal disorder [Unknown]
  - Blood calcium decreased [Unknown]
  - Musculoskeletal chest pain [Unknown]
  - Skin discolouration [Unknown]
  - Paraesthesia [Recovered/Resolved]
  - Condition aggravated [Unknown]
  - Insomnia [Unknown]
  - Hypophagia [Unknown]
  - Mental disability [Unknown]
  - Skin discolouration [Unknown]
  - Skin atrophy [Unknown]
  - Pruritus [Unknown]
  - Hypertension [Unknown]
  - Viral infection [Unknown]
  - Hypersensitivity [Unknown]

NARRATIVE: CASE EVENT DATE: 20210101
